FAERS Safety Report 8508001-9 (Version None)
Quarter: 2012Q3

REPORT INFORMATION
  Report Type: 
  Country: None (occurrence: None)
  Receive Date: 20120713
  Receipt Date: 20120702
  Transmission Date: 20120928
  Serious: Yes (Hospitalization, Other)
  Sender: FDA-Public Use
  Company Number: US-BAYER-2012-067131

PATIENT
  Age: 30 Year
  Sex: Female

DRUGS (16)
  1. YASMIN [Suspect]
     Indication: CONTRACEPTION
  2. CARISOPRODOL [Concomitant]
     Indication: MYALGIA
     Dosage: 350 MG, 1 EVERY 6 HOURS AS NEEDED
     Route: 048
     Dates: start: 20080720
  3. PROMETHEGAN [Concomitant]
     Indication: VOMITING
  4. DROSPIRENONE AND ETHINYL ESTRADIOL [Suspect]
  5. CEFUROXIME [Concomitant]
     Dosage: 500 MG, UNK
     Route: 048
  6. PROMETHEGAN [Concomitant]
     Indication: NAUSEA
     Dosage: 25 MG, 1 EVERY 6 HOURS AS NEEDED
     Route: 054
  7. ACIPHEX [Concomitant]
     Indication: GASTROOESOPHAGEAL REFLUX DISEASE
     Dosage: 20 MG, DAILY
     Route: 048
  8. PROMETHAZINE [Concomitant]
     Dosage: 12.5 MG, UNK
     Route: 048
  9. DARVOCET-N 50 [Concomitant]
     Indication: MIGRAINE
     Dosage: 100 MG, PRN
  10. DARVON [Concomitant]
  11. IRON [Concomitant]
     Dosage: UNK UNK, PRN
  12. PHENERGAN HCL [Concomitant]
     Indication: MIGRAINE
     Dosage: 25 MG, PRN
     Route: 048
  13. ONDANSETRON [Concomitant]
     Dosage: 8 MG, UNK
     Route: 048
     Dates: start: 20080720
  14. TRANSDERM SCOP [Concomitant]
     Route: 061
  15. OXYCODONE HCL AND ACETAMINOPHEN [Concomitant]
     Indication: PAIN
     Dosage: 10 MG/ 325MG 1 EVERY 4 HOURS PRN
     Route: 048
     Dates: start: 20080720
  16. ASCORBIC ACID [Concomitant]
     Dosage: DAILY

REACTIONS (2)
  - PULMONARY EMBOLISM [None]
  - CHOLELITHIASIS [None]
